FAERS Safety Report 10208877 (Version 2)
Quarter: 2014Q2

REPORT INFORMATION
  Report Type: Report from Study
  Country: US (occurrence: US)
  Receive Date: 20140530
  Receipt Date: 20140530
  Transmission Date: 20141212
  Serious: Yes (Hospitalization)
  Sender: FDA-Public Use
  Company Number: US-ABBVIE-14P-163-1219855-00

PATIENT
  Sex: Female
  Weight: 81.72 kg

DRUGS (7)
  1. HUMIRA [Suspect]
     Indication: PSORIASIS
  2. HUMIRA [Suspect]
     Dates: start: 20131105
  3. HUMIRA [Suspect]
     Dates: start: 20140319
  4. HYDROCHLOROTHIAZIDE [Concomitant]
     Indication: PRODUCT USED FOR UNKNOWN INDICATION
     Route: 048
  5. METOPROLOL [Concomitant]
     Indication: PRODUCT USED FOR UNKNOWN INDICATION
  6. PREDNISONE [Concomitant]
     Indication: SWELLING
  7. PREDNISONE [Concomitant]
     Indication: PROPHYLAXIS

REACTIONS (8)
  - Pain [Recovered/Resolved]
  - Pituitary tumour benign [Recovered/Resolved]
  - Optic nerve neoplasm [Recovered/Resolved]
  - Psoriasis [Recovering/Resolving]
  - Influenza [Recovering/Resolving]
  - Drug dose omission [Not Recovered/Not Resolved]
  - Fall [Recovered/Resolved]
  - Head injury [Recovered/Resolved]
